FAERS Safety Report 9611490 (Version 1)
Quarter: 2013Q4

REPORT INFORMATION
  Report Type: Spontaneous
  Country: FR (occurrence: FR)
  Receive Date: 20131010
  Receipt Date: 20131010
  Transmission Date: 20140711
  Serious: Yes (Hospitalization)
  Sender: FDA-Public Use
  Company Number: FR-009507513-1310FRA000352

PATIENT
  Age: 76 Year
  Sex: Female

DRUGS (11)
  1. JANUMET [Suspect]
     Indication: TYPE 2 DIABETES MELLITUS
     Dosage: 2 DF, QD
     Route: 048
     Dates: end: 20130803
  2. BIPRETERAX [Suspect]
     Indication: HYPERTENSION
     Dosage: 1 DF, QD
     Route: 048
     Dates: end: 20130803
  3. ESOMEPRAZOLE [Suspect]
     Dosage: 20 MG, QD
     Route: 048
     Dates: end: 20130803
  4. GLICLAZIDE [Suspect]
     Indication: TYPE 2 DIABETES MELLITUS
     Dosage: 30 MG, QD
     Route: 048
     Dates: end: 20130803
  5. CITALOPRAM [Suspect]
     Indication: DEPRESSION
     Dosage: 20 MG, QD
     Route: 048
     Dates: end: 20130803
  6. ALPRAZOLAM [Suspect]
     Indication: DEPRESSION
     Dosage: UNK
     Route: 048
     Dates: end: 20130803
  7. MONOCRIXO [Suspect]
     Dosage: UNK
     Route: 048
     Dates: end: 20130803
  8. PERINDOPRIL [Concomitant]
     Dosage: 4 MG, QD
  9. TEMERIT [Concomitant]
     Dosage: 5 MG, QD
  10. HYPERIUM [Concomitant]
     Dosage: 1 MG, QD
  11. PIASCLEDINE [Concomitant]
     Dosage: UNK

REACTIONS (1)
  - Hyponatraemic encephalopathy [Recovered/Resolved]
